FAERS Safety Report 9349259 (Version 2)
Quarter: 2013Q3

REPORT INFORMATION
  Report Type: Report from Study
  Country: US (occurrence: US)
  Receive Date: 20130614
  Receipt Date: 20130719
  Transmission Date: 20140515
  Serious: Yes (Hospitalization)
  Sender: FDA-Public Use
  Company Number: US-BRISTOL-MYERS SQUIBB COMPANY-18978411

PATIENT
  Age: 84 Year
  Sex: Male
  Weight: 108.84 kg

DRUGS (12)
  1. CARBOPLATIN [Suspect]
     Indication: NON-SMALL CELL LUNG CANCER
     Dosage: IVPB
     Route: 042
     Dates: start: 20130424, end: 20130426
  2. PACLITAXEL [Suspect]
     Indication: NON-SMALL CELL LUNG CANCER
     Dosage: IVPB
     Route: 042
     Dates: start: 20130426, end: 20130426
  3. ASPIRIN [Concomitant]
     Indication: PROPHYLAXIS
     Dates: start: 20000601
  4. HYDROCHLOROTHIAZIDE [Concomitant]
     Indication: HYPERTENSION
     Dates: start: 20100401
  5. LEVEMIR [Concomitant]
     Indication: DIABETES MELLITUS
     Dosage: 1DF:45UNITS
     Dates: start: 19730701
  6. NOVOLOG [Concomitant]
     Indication: DIABETES MELLITUS
     Dosage: 1DF:17UNITS
     Dates: start: 19730701
  7. LEVOTHYROXINE [Concomitant]
     Indication: HYPOTHYROIDISM
     Dates: start: 20100201
  8. PLAVIX [Concomitant]
     Indication: HYPERTENSION
     Dates: start: 20001001
  9. SIMVASTATIN [Concomitant]
     Indication: HYPERCHOLESTEROLAEMIA
     Dates: start: 20100401
  10. NEURONTIN [Concomitant]
     Indication: NEUROPATHY PERIPHERAL
     Dates: start: 20130418
  11. DECADRON [Concomitant]
     Indication: PROPHYLACTIC CHEMOTHERAPY
     Dosage: 12 HRS PRIOR TO CHEMO
     Dates: start: 20130424
  12. MORPHINE [Concomitant]
     Indication: COUGH
     Dosage: 1DF:20MG/ML
     Dates: start: 20130424

REACTIONS (3)
  - Febrile neutropenia [Recovered/Resolved]
  - Cardiac failure congestive [Recovered/Resolved]
  - Renal failure [Recovered/Resolved]
